FAERS Safety Report 25130312 (Version 1)
Quarter: 2025Q1

REPORT INFORMATION
  Report Type: Spontaneous
  Country: US (occurrence: US)
  Receive Date: 20250327
  Receipt Date: 20250327
  Transmission Date: 20250409
  Serious: No
  Sender: ESPERION THERAPEUTICS
  Company Number: US-ESPERIONTHERAPEUTICS-2025USA00130

PATIENT
  Age: 67 Year
  Sex: Female

DRUGS (3)
  1. NEXLIZET [Suspect]
     Active Substance: BEMPEDOIC ACID\EZETIMIBE
     Indication: Low density lipoprotein increased
     Dosage: 180 MG/10 MG ONCE DAILY IN THE MORNING AFTER BREAKFAST
     Route: 048
     Dates: start: 2024, end: 202501
  2. NEXLIZET [Suspect]
     Active Substance: BEMPEDOIC ACID\EZETIMIBE
     Indication: Blood calcium increased
  3. ASPIRIN [Concomitant]
     Active Substance: ASPIRIN
     Route: 065

REACTIONS (3)
  - Gait disturbance [Unknown]
  - Pain in extremity [Recovering/Resolving]
  - Tendonitis [Unknown]

NARRATIVE: CASE EVENT DATE: 20250127
